FAERS Safety Report 5908970-7 (Version None)
Quarter: 2008Q4

REPORT INFORMATION
  Report Type: 
  Country: None (occurrence: None)
  Receive Date: 20081001
  Receipt Date: 20080916
  Transmission Date: 20090506
  Serious: Yes (Hospitalization, Other)
  Sender: FDA-Public Use
  Company Number: ENTC2008-0252

PATIENT
  Age: 67 Year
  Sex: Female

DRUGS (9)
  1. STALEVO 100 [Suspect]
     Dosage: 150/37.5/200 MG X 3 ORAL
     Route: 048
     Dates: start: 20080219, end: 20080510
  2. INIPOMP [Suspect]
     Dosage: 40 MG, QD ORAL
     Route: 048
     Dates: start: 20080201, end: 20080510
  3. DEROXAT [Suspect]
     Dosage: 20MG, QD ORAL
     Route: 048
     Dates: start: 20080219, end: 20080510
  4. IMODIUM [Suspect]
     Dates: end: 20080601
  5. IMODIUM [Suspect]
     Dates: end: 20080601
  6. REQUIP [Concomitant]
  7. SINEMET [Concomitant]
  8. LEPONEX [Concomitant]
  9. XANAX [Concomitant]

REACTIONS (3)
  - CARCINOID TUMOUR OF THE SMALL BOWEL [None]
  - CHOLESTASIS [None]
  - CYTOLYTIC HEPATITIS [None]
